FAERS Safety Report 24569398 (Version 1)
Quarter: 2024Q4

REPORT INFORMATION
  Report Type: Spontaneous
  Country: US (occurrence: None)
  Receive Date: 20241030
  Receipt Date: 20241030
  Transmission Date: 20250114
  Serious: Yes (Other)
  Sender: Public
  Company Number: None

PATIENT
  Age: 84 Year
  Sex: Female
  Weight: 76.5 kg

DRUGS (5)
  1. XIIDRA [Suspect]
     Active Substance: LIFITEGRAST
     Indication: Dry eye
     Dosage: 1 DROP TWICE A DAY OPHTHALMIC
     Route: 047
  2. LOSARTAN [Concomitant]
     Active Substance: LOSARTAN
  3. ESTRADIOL [Concomitant]
     Active Substance: ESTRADIOL
  4. Multi-vitamin daily [Concomitant]
  5. ZINC [Concomitant]
     Active Substance: ZINC

REACTIONS (3)
  - Discharge [None]
  - Productive cough [None]
  - Sinus disorder [None]

NARRATIVE: CASE EVENT DATE: 20230120
